FAERS Safety Report 7116682-X (Version None)
Quarter: 2010Q4

REPORT INFORMATION
  Report Type: 
  Country: None (occurrence: None)
  Receive Date: 20101122
  Receipt Date: 20101116
  Transmission Date: 20110411
  Serious: Yes (Hospitalization)
  Sender: FDA-Public Use
  Company Number: B0684657A

PATIENT
  Sex: Male

DRUGS (3)
  1. AUGMENTIN '125' [Suspect]
     Dosage: 2G PER DAY
     Route: 048
     Dates: start: 20100427, end: 20100505
  2. CISPLATIN [Suspect]
     Indication: ADENOCARCINOMA
     Route: 042
     Dates: start: 20100420, end: 20100420
  3. GEMZAR [Concomitant]
     Indication: ADENOCARCINOMA
     Route: 042
     Dates: start: 20100426, end: 20100426

REACTIONS (2)
  - HYPERKALAEMIA [None]
  - RENAL FAILURE ACUTE [None]
